FAERS Safety Report 11993387 (Version 4)
Quarter: 2016Q2

REPORT INFORMATION
  Report Type: Report from Study
  Country: JP (occurrence: JP)
  Receive Date: 20160203
  Receipt Date: 20160524
  Transmission Date: 20160815
  Serious: Yes (Death, Other)
  Sender: FDA-Public Use
  Company Number: JP-ROCHE-1700170

PATIENT

DRUGS (3)
  1. TRASTUZUMAB [Suspect]
     Active Substance: TRASTUZUMAB
     Route: 042
  2. IRINOTECAN [Suspect]
     Active Substance: IRINOTECAN
     Indication: HER-2 POSITIVE GASTRIC CANCER
     Route: 042
  3. TRASTUZUMAB [Suspect]
     Active Substance: TRASTUZUMAB
     Indication: HER-2 POSITIVE GASTRIC CANCER
     Dosage: LOADING DOSE
     Route: 042

REACTIONS (8)
  - Death [Fatal]
  - Leukopenia [Unknown]
  - Hypokalaemia [Unknown]
  - Fatigue [Unknown]
  - Hypoalbuminaemia [Unknown]
  - Decreased appetite [Unknown]
  - Neutropenia [Unknown]
  - Anaemia [Unknown]
